FAERS Safety Report 13547276 (Version 9)
Quarter: 2017Q3

REPORT INFORMATION
  Report Type: Spontaneous
  Country: US (occurrence: US)
  Receive Date: 20170515
  Receipt Date: 20170913
  Transmission Date: 20171127
  Serious: Yes (Hospitalization)
  Sender: FDA-Public Use
  Company Number: US-ACTELION-A-NJ2017-153665

PATIENT
  Age: 65 Year
  Sex: Female
  Weight: 48.73 kg

DRUGS (6)
  1. VELETRI [Suspect]
     Active Substance: EPOPROSTENOL
     Dosage: UNK NG/KG, PER MIN
     Route: 042
  2. XARELTO [Concomitant]
     Active Substance: RIVAROXABAN
  3. VELETRI [Suspect]
     Active Substance: EPOPROSTENOL
     Indication: PULMONARY HYPERTENSION
     Dosage: 13 NG/KG, PER MIN
     Route: 042
  4. VELETRI [Suspect]
     Active Substance: EPOPROSTENOL
     Dosage: 9 NG/KG, PER MIN
     Route: 042
  5. VELETRI [Suspect]
     Active Substance: EPOPROSTENOL
     Dosage: 16 NG/KG, PER MIN
     Route: 042
  6. SILDENAFIL CITRATE. [Concomitant]
     Active Substance: SILDENAFIL CITRATE

REACTIONS (15)
  - Fluid retention [Unknown]
  - Dyspnoea exertional [Unknown]
  - Haemoglobin decreased [Unknown]
  - Asthenia [Unknown]
  - Headache [Unknown]
  - Haemoptysis [Unknown]
  - Hypoxia [Unknown]
  - Nausea [Unknown]
  - Head discomfort [Unknown]
  - Oedema [Unknown]
  - Haematochezia [Unknown]
  - Fatigue [Unknown]
  - Ear discomfort [Unknown]
  - Balance disorder [Unknown]
  - Diarrhoea [Unknown]
